FAERS Safety Report 15163977 (Version 1)
Quarter: 2018Q3

REPORT INFORMATION
  Report Type: Spontaneous
  Country: US (occurrence: US)
  Receive Date: 20180719
  Receipt Date: 20180719
  Transmission Date: 20181010
  Serious: Yes (Hospitalization, Other)
  Sender: FDA-Public Use
  Company Number: US-ZYDUS-020852

PATIENT
  Age: 24 Year
  Sex: Male

DRUGS (6)
  1. RISPERIDONE. [Suspect]
     Active Substance: RISPERIDONE
     Indication: PRODUCT USED FOR UNKNOWN INDICATION
     Route: 048
  2. OLANZAPINE. [Suspect]
     Active Substance: OLANZAPINE
     Indication: PRODUCT USED FOR UNKNOWN INDICATION
     Dosage: 5MG AND 10MG (TOTAL 60 UNITS)
     Route: 048
  3. BUPROPION/BUPROPION HYDROCHLORIDE [Suspect]
     Active Substance: BUPROPION HYDROCHLORIDE
     Indication: PRODUCT USED FOR UNKNOWN INDICATION
     Dosage: SUSTAINED RELEASE 100MG AND EXTENDED RELEASE 150MG (TOTAL 60 UNITS)
     Route: 048
  4. TRAZODONE [Suspect]
     Active Substance: TRAZODONE HYDROCHLORIDE
     Indication: PRODUCT USED FOR UNKNOWN INDICATION
     Route: 048
  5. FLUOXETINE [Suspect]
     Active Substance: FLUOXETINE HYDROCHLORIDE
     Indication: PRODUCT USED FOR UNKNOWN INDICATION
     Route: 048
  6. CYPROHEPTADINE. [Suspect]
     Active Substance: CYPROHEPTADINE
     Indication: PRODUCT USED FOR UNKNOWN INDICATION
     Route: 048

REACTIONS (33)
  - White blood cell count increased [Recovered/Resolved]
  - Autonomic nervous system imbalance [Recovered/Resolved]
  - Hyperreflexia [Recovered/Resolved]
  - Blood lactic acid increased [None]
  - Blood creatine phosphokinase increased [None]
  - Blood alkaline phosphatase increased [None]
  - Intentional overdose [Unknown]
  - Rhabdomyolysis [Recovered/Resolved]
  - Pupil fixed [Recovered/Resolved]
  - Electrocardiogram QT prolonged [Recovered/Resolved]
  - Chills [Recovered/Resolved]
  - Nystagmus [Recovered/Resolved]
  - Pyrexia [Recovered/Resolved]
  - Intentional overdose [None]
  - Agitation [Recovered/Resolved]
  - Aspartate aminotransferase increased [None]
  - Acute kidney injury [Recovered/Resolved]
  - Symptom masked [Recovered/Resolved]
  - Reflexes abnormal [Recovered/Resolved]
  - White blood cell count increased [None]
  - Electrocardiogram QT prolonged [None]
  - Unresponsive to stimuli [Recovered/Resolved]
  - Pneumonia aspiration [Recovered/Resolved]
  - Serotonin syndrome [Recovered/Resolved]
  - Tachycardia [Recovered/Resolved]
  - Alanine aminotransferase increased [None]
  - Haemodynamic instability [Recovered/Resolved]
  - Electrolyte imbalance [Recovered/Resolved]
  - Blood creatinine increased [Recovered/Resolved]
  - Myoclonus [Recovered/Resolved]
  - Blood bicarbonate decreased [None]
  - Hypotension [Recovered/Resolved]
  - Clonus [Recovered/Resolved]
